FAERS Safety Report 8906925 (Version 1)
Quarter: 2012Q4

REPORT INFORMATION
  Report Type: 
  Country: US (occurrence: US)
  Receive Date: 20121114
  Receipt Date: 20121114
  Transmission Date: 20130627
  Serious: No
  Sender: FDA-Public Use
  Company Number: US-009507513-1210USA007337

PATIENT

DRUGS (2)
  1. AZASITE [Suspect]
     Indication: EYE INFECTION
     Dosage: 1 DF, qpm
     Route: 047
  2. AZASITE [Suspect]
     Dosage: 1 DF, qw
     Route: 047

REACTIONS (2)
  - Inappropriate schedule of drug administration [Unknown]
  - No adverse event [Unknown]
